FAERS Safety Report 10256864 (Version 2)
Quarter: 2015Q1

REPORT INFORMATION
  Report Type: Spontaneous
  Country: US (occurrence: US)
  Receive Date: 20140625
  Receipt Date: 20140625
  Transmission Date: 20150720
  Serious: Yes (Other)
  Sender: FDA-Public Use
  Company Number: US-AMGEN-USASP2014046617

PATIENT
  Age: 31 Year
  Sex: Male

DRUGS (10)
  1. METHOTREXATE [Suspect]
     Active Substance: METHOTREXATE
     Dosage: TITRATED UP TO 17.5 MG WEEKLY
     Route: 065
  2. PREDNISONE. [Concomitant]
     Active Substance: PREDNISONE
     Dosage: 10 TO 20 MG DAILY
  3. PREDNISONE. [Concomitant]
     Active Substance: PREDNISONE
     Dosage: 20 MG, QD
  4. PREDNISONE. [Concomitant]
     Active Substance: PREDNISONE
     Dosage: 40 MG, QD
  5. METHOTREXATE [Suspect]
     Active Substance: METHOTREXATE
     Dosage: MAINTAINED AT 10 MG WEEKLY
     Route: 065
  6. PREDNISONE. [Concomitant]
     Active Substance: PREDNISONE
     Dosage: 50 MG, QD
  7. HYDROXYCHLOROQUINE [Concomitant]
     Active Substance: HYDROXYCHLOROQUINE
     Dosage: 400 MG, QD
  8. METHOTREXATE [Suspect]
     Active Substance: METHOTREXATE
     Indication: PRODUCT USED FOR UNKNOWN INDICATION
     Dosage: 15 MG, QWK
     Route: 065
  9. PREDNISONE. [Concomitant]
     Active Substance: PREDNISONE
     Dosage: 2.5 TO 5 MG DAILY FOR 30 MONTHS
  10. ENBREL [Suspect]
     Active Substance: ETANERCEPT
     Indication: PRODUCT USED FOR UNKNOWN INDICATION
     Dosage: 25 MG, 2 TIMES/WK
     Route: 058

REACTIONS (18)
  - Pneumonia bacterial [Recovered/Resolved]
  - Red blood cell sedimentation rate increased [Unknown]
  - Chronic hepatitis [Unknown]
  - C-reactive protein increased [Unknown]
  - Rash erythematous [Unknown]
  - Still^s disease adult onset [Unknown]
  - Hepatic steatosis [Unknown]
  - Joint range of motion decreased [Unknown]
  - Joint effusion [Unknown]
  - Arthralgia [Unknown]
  - Rash maculo-papular [Unknown]
  - Hepatic fibrosis [Unknown]
  - Alanine aminotransferase increased [Unknown]
  - Serum ferritin increased [Unknown]
  - Lymphadenopathy [Unknown]
  - Transaminases increased [Unknown]
  - Pyrexia [Unknown]
  - Leukocytosis [Unknown]
